FAERS Safety Report 13353941 (Version 1)
Quarter: 2017Q1

REPORT INFORMATION
  Report Type: Spontaneous
  Country: US (occurrence: US)
  Receive Date: 20170321
  Receipt Date: 20170321
  Transmission Date: 20170429
  Serious: No
  Sender: FDA-Public Use
  Company Number: US-PFIZER INC-2017118638

PATIENT
  Age: 5 Year
  Sex: Male

DRUGS (3)
  1. QUILLIVANT XR [Suspect]
     Active Substance: METHYLPHENIDATE HYDROCHLORIDE
     Indication: ATTENTION DEFICIT/HYPERACTIVITY DISORDER
     Dosage: 4 MG, 1X/DAY
     Route: 048
     Dates: start: 201701, end: 201701
  2. QUILLIVANT XR [Suspect]
     Active Substance: METHYLPHENIDATE HYDROCHLORIDE
     Dosage: 3 MG, DAILY
     Route: 048
     Dates: start: 201701
  3. GUANFACINE. [Concomitant]
     Active Substance: GUANFACINE
     Indication: ATTENTION DEFICIT/HYPERACTIVITY DISORDER
     Dosage: 2 MG, 1X/DAY IN THE AFTERNOON
     Route: 048
     Dates: start: 2016

REACTIONS (6)
  - Priapism [Not Recovered/Not Resolved]
  - Product use issue [Not Recovered/Not Resolved]
  - Penile pain [Unknown]
  - Abnormal behaviour [Not Recovered/Not Resolved]
  - Irritability [Recovered/Resolved]
  - Penile erythema [Unknown]

NARRATIVE: CASE EVENT DATE: 201701
